FAERS Safety Report 5902804-2 (Version None)
Quarter: 2008Q3

REPORT INFORMATION
  Report Type: 
  Country: None (occurrence: None)
  Receive Date: 20080929
  Receipt Date: 20080929
  Transmission Date: 20090109
  Serious: Yes (Life-Threatening, Disabling, Other)
  Sender: FDA-Public Use
  Company Number: None

PATIENT
  Age: 27 Year
  Sex: Female
  Weight: 55.3388 kg

DRUGS (2)
  1. CYMBALTA [Suspect]
     Indication: GENERALISED ANXIETY DISORDER
     Dosage: 20MG ONCE DAILY PO
     Route: 048
     Dates: start: 20080110, end: 20080920
  2. CYMBALTA [Suspect]
     Indication: MIGRAINE
     Dosage: 20MG ONCE DAILY PO
     Route: 048
     Dates: start: 20080110, end: 20080920

REACTIONS (2)
  - DRUG WITHDRAWAL SYNDROME [None]
  - PARAESTHESIA [None]
